FAERS Safety Report 7991358-5 (Version None)
Quarter: 2011Q4

REPORT INFORMATION
  Report Type: 
  Country: None (occurrence: None)
  Receive Date: 20111123
  Receipt Date: 20110927
  Transmission Date: 20120403
  Serious: No
  Sender: FDA-Public Use
  Company Number: 337785

PATIENT
  Age: 59 Year
  Sex: Male

DRUGS (3)
  1. METFORMIN HCL [Concomitant]
  2. GLIPIZIDE [Concomitant]
  3. VICTOZA [Suspect]
     Indication: TYPE 2 DIABETES MELLITUS
     Dosage: 0.6 MG, QD, SUBCUTANEOUS
     Route: 058
     Dates: start: 20110901

REACTIONS (1)
  - ERUCTATION [None]
